FAERS Safety Report 12695581 (Version 2)
Quarter: 2016Q4

REPORT INFORMATION
  Report Type: Spontaneous
  Country: US (occurrence: US)
  Receive Date: 20160829
  Receipt Date: 20161209
  Transmission Date: 20170207
  Serious: No
  Sender: FDA-Public Use
  Company Number: US-BION-20160260

PATIENT
  Age: 42 Year
  Sex: Female
  Weight: 90.72 kg

DRUGS (2)
  1. VALPROIC ACID CAPSULES [Suspect]
     Active Substance: VALPROIC ACID
     Dosage: TOPICAL EXPOSURE TO HANDS WHILE FILLING THE PRESCRIPTION
     Route: 061
  2. NATURE-THROID [Concomitant]
     Active Substance: THYROID, PORCINE

REACTIONS (4)
  - Urticaria [Recovered/Resolved]
  - Erythema [Recovered/Resolved]
  - Erythema [None]
  - Occupational exposure to product [Recovered/Resolved]
